FAERS Safety Report 8844184 (Version 1)
Quarter: 2012Q4

REPORT INFORMATION
  Report Type: 
  Country: US (occurrence: US)
  Receive Date: 20121016
  Receipt Date: 20121016
  Transmission Date: 20130627
  Serious: No
  Sender: FDA-Public Use
  Company Number: US-009507513-1209USA001706

PATIENT
  Sex: Female

DRUGS (2)
  1. ASMANEX TWISTHALER [Suspect]
     Indication: ASTHMA
     Dosage: 110 Microgram,one puff a day
  2. ASMANEX TWISTHALER [Suspect]
     Dosage: 220 microgram

REACTIONS (3)
  - Dyspnoea [Recovering/Resolving]
  - Asthma [Recovering/Resolving]
  - Drug dose omission [Unknown]
